FAERS Safety Report 4397135-9 (Version None)
Quarter: 2004Q3

REPORT INFORMATION
  Report Type: 
  Country: None (occurrence: None)
  Receive Date: 20040708
  Receipt Date: 20040625
  Transmission Date: 20050211
  Serious: Yes (Hospitalization, Other)
  Sender: FDA-Public Use
  Company Number: 2004043288

PATIENT
  Age: 25 Year
  Sex: Female

DRUGS (11)
  1. VORICONAZOLE (VORICONAZOLE) [Suspect]
     Indication: ASPERGILLOSIS
     Dosage: 400 MG (200 MG, 2 IN 1 D), ORAL
     Route: 048
     Dates: start: 20040609, end: 20040616
  2. CYCLOSPORINE [Concomitant]
  3. AMPHOTERICIN B [Concomitant]
  4. ACYCLOVIR [Concomitant]
  5. AMLODIPINE [Concomitant]
  6. FOLIC ACID [Concomitant]
  7. LANSOPRAZOLE [Concomitant]
  8. LENOGRASTIM (LENOGRASTIM) [Concomitant]
  9. ALL OTHER THERAPEUTIC PRODUCTS (ALL OTHER THERAPEUTIC PRODUCTS) [Concomitant]
  10. GENTAMICIN [Concomitant]
  11. CHLORHEXIDINE GLUCONATE [Concomitant]

REACTIONS (1)
  - CEREBELLAR SYNDROME [None]
